FAERS Safety Report 10213869 (Version 1)
Quarter: 2014Q2

REPORT INFORMATION
  Report Type: Spontaneous
  Country: US (occurrence: None)
  Receive Date: 20140602
  Receipt Date: 20140602
  Transmission Date: 20141212
  Serious: Yes (Life-Threatening, Hospitalization)
  Sender: FDA-Public Use
  Company Number: None

PATIENT
  Age: 52 Year
  Sex: Male
  Weight: 92.99 kg

DRUGS (16)
  1. SIGNIFOR [Suspect]
     Indication: PITUITARY-DEPENDENT CUSHING^S SYNDROME
     Dosage: GIVEN INTO/UNDER THE SKIN
     Dates: start: 20140117, end: 20140517
  2. SIGNIFOR [Suspect]
     Indication: SURGICAL FAILURE
     Dosage: GIVEN INTO/UNDER THE SKIN
     Dates: start: 20140117, end: 20140517
  3. LAMICTAL 150 MG [Concomitant]
  4. SIGNIFOR .3 [Concomitant]
  5. SEROQUEL 25 MG FILM-COATED TABLET [Concomitant]
  6. GABAPENTIN 400 MG [Concomitant]
  7. XANAX [Concomitant]
  8. MILK OF MAGNESIA 500 MG [Concomitant]
  9. VITAMIN D3 -1000 IU [Concomitant]
  10. VITAMIN B12 600 [Concomitant]
  11. CALCIUM AND MAGNESIUM COMBO - 600MG/400MG [Concomitant]
  12. MULTI-VITAMIN [Concomitant]
  13. SENOKOT [Concomitant]
  14. DULCOLASE [Concomitant]
  15. FISH OIL - 1000IU [Concomitant]
  16. BABY ASPIRIN [Concomitant]

REACTIONS (5)
  - Abdominal pain [None]
  - Cholelithiasis [None]
  - Gallbladder necrosis [None]
  - Cholecystitis infective [None]
  - Gallbladder perforation [None]
